FAERS Safety Report 8073289-8 (Version None)
Quarter: 2012Q1

REPORT INFORMATION
  Report Type: 
  Country: None (occurrence: None)
  Receive Date: 20120120
  Receipt Date: 20120104
  Transmission Date: 20120608
  Serious: Yes (Death)
  Sender: FDA-Public Use
  Company Number: 1158784

PATIENT
  Age: 57 Year
  Sex: Male

DRUGS (6)
  1. VALSARTAN [Concomitant]
  2. (ESOMEPRAZOLE) [Concomitant]
  3. ATORVASTATIN [Concomitant]
  4. SOLU-MEDROL [Concomitant]
  5. EPINEPHRINE [Suspect]
     Indication: FOOD ALLERGY
     Dosage: 0.3 MG, SUBCUTANEOUS ; 3 MG SUBCUTANEOUS
     Route: 058
  6. (METOPROLOL) [Concomitant]

REACTIONS (9)
  - MEDICATION ERROR [None]
  - VENTRICULAR EXTRASYSTOLES [None]
  - OVERDOSE [None]
  - VOMITING [None]
  - RESPIRATORY TRACT OEDEMA [None]
  - CHEST PAIN [None]
  - TACHYCARDIA [None]
  - IATROGENIC INJURY [None]
  - MYOCARDIAL INFARCTION [None]
